FAERS Safety Report 4577551-2 (Version None)
Quarter: 2005Q1

REPORT INFORMATION
  Report Type: 
  Country: None (occurrence: None)
  Receive Date: 20050208
  Receipt Date: 20050126
  Transmission Date: 20050727
  Serious: Yes (Hospitalization, Other)
  Sender: FDA-Public Use
  Company Number: 2005021908

PATIENT
  Age: 29 Year
  Sex: Female

DRUGS (2)
  1. DIFLUCAN [Suspect]
     Indication: BLOOD BETA-D-GLUCAN INCREASED
     Dates: start: 20040101, end: 20040101
  2. SULFAMETHOXAZOLE + TRIMETHOPRIM [Suspect]
     Indication: BLOOD BETA-D-GLUCAN INCREASED
     Dates: start: 20040101, end: 20040101

REACTIONS (5)
  - ADENOVIRUS INFECTION [None]
  - KIDNEY TRANSPLANT REJECTION [None]
  - PANCYTOPENIA [None]
  - RENAL TUBULAR NECROSIS [None]
  - TUBULOINTERSTITIAL NEPHRITIS [None]
